FAERS Safety Report 20405183 (Version 1)
Quarter: 2022Q1

REPORT INFORMATION
  Report Type: Spontaneous
  Country: GR (occurrence: GR)
  Receive Date: 20220131
  Receipt Date: 20220131
  Transmission Date: 20220424
  Serious: Yes (Other)
  Sender: FDA-Public Use
  Company Number: GR-BAYER-2022A012845

PATIENT
  Age: 55 Year
  Sex: Male

DRUGS (5)
  1. REGORAFENIB [Suspect]
     Active Substance: REGORAFENIB
     Indication: Colorectal adenocarcinoma
     Dosage: UNK
     Dates: start: 202104
  2. REGORAFENIB [Suspect]
     Active Substance: REGORAFENIB
     Indication: Colorectal adenocarcinoma
     Dosage: DOSE DECREASED
     Dates: end: 202105
  3. PEMBROLIZUMAB [Suspect]
     Active Substance: PEMBROLIZUMAB
     Indication: Colorectal adenocarcinoma
     Dosage: UNK
     Dates: start: 202104
  4. PEMBROLIZUMAB [Suspect]
     Active Substance: PEMBROLIZUMAB
     Indication: Colorectal adenocarcinoma
     Dosage: DOSE DECREASED
     Dates: end: 202105
  5. COVID-19 VACCINE [Concomitant]
     Dosage: UNK
     Dates: start: 202105, end: 202105

REACTIONS (3)
  - Immune-mediated hepatic disorder [None]
  - Liver function test abnormal [None]
  - Drug intolerance [None]
